FAERS Safety Report 8411830 (Version 7)
Quarter: 2013Q1

REPORT INFORMATION
  Report Type: Spontaneous
  Country: CA (occurrence: CA)
  Receive Date: 20120217
  Receipt Date: 20130318
  Transmission Date: 20140127
  Serious: Yes (Hospitalization, Other)
  Sender: FDA-Public Use
  Company Number: PHHY2011CA86491

PATIENT
  Age: 82 Year
  Sex: Male

DRUGS (2)
  1. EXJADE [Suspect]
     Indication: MYELODYSPLASTIC SYNDROME
     Dosage: 500 MG, QD
     Route: 048
     Dates: start: 201001
  2. EXJADE [Suspect]
     Dosage: 500 MG PER DAY
     Route: 048

REACTIONS (11)
  - Pneumonia [Unknown]
  - Haemoglobin decreased [Unknown]
  - Chest pain [Unknown]
  - Dental caries [Recovered/Resolved]
  - Toothache [Unknown]
  - Amnesia [Unknown]
  - Nasopharyngitis [Unknown]
  - Dysphonia [Unknown]
  - Neutropenia [Unknown]
  - Pruritus [Recovering/Resolving]
  - Dry skin [Unknown]
